FAERS Safety Report 25265827 (Version 1)
Quarter: 2025Q2

REPORT INFORMATION
  Report Type: Spontaneous
  Country: PL (occurrence: PL)
  Receive Date: 20250503
  Receipt Date: 20250503
  Transmission Date: 20250717
  Serious: Yes (Hospitalization)
  Sender: ACCORD
  Company Number: None

PATIENT
  Age: 68 Year
  Sex: Female
  Weight: 56 kg

DRUGS (2)
  1. FLUOROURACIL [Suspect]
     Active Substance: FLUOROURACIL
     Indication: Product used for unknown indication
     Dates: start: 20200909, end: 20200911
  2. IRINOTECAN [Suspect]
     Active Substance: IRINOTECAN
     Indication: Product used for unknown indication
     Dates: start: 20200909, end: 20200909

REACTIONS (1)
  - Ileus paralytic [Not Recovered/Not Resolved]

NARRATIVE: CASE EVENT DATE: 20200930
